FAERS Safety Report 11507076 (Version 1)
Quarter: 2015Q3

REPORT INFORMATION
  Report Type: Spontaneous
  Country: US (occurrence: None)
  Receive Date: 20150914
  Receipt Date: 20150914
  Transmission Date: 20151125
  Serious: No
  Sender: FDA-Public Use
  Company Number: None

PATIENT
  Age: 72 Year
  Sex: Male

DRUGS (7)
  1. OXYCODONE AND ACETAMINOPHEN [Concomitant]
     Active Substance: ACETAMINOPHEN\OXYCODONE\OXYCODONE HYDROCHLORIDE
  2. SIMPONI [Concomitant]
     Active Substance: GOLIMUMAB
  3. PREDNISONE 5MG ROXANE [Suspect]
     Active Substance: PREDNISONE
     Indication: PROSTATE CANCER
     Route: 048
     Dates: start: 20150513, end: 201509
  4. ACYCLOVIR. [Concomitant]
     Active Substance: ACYCLOVIR
  5. PROVALITE [Concomitant]
  6. LYRICA [Concomitant]
     Active Substance: PREGABALIN
  7. ZYTIGA [Suspect]
     Active Substance: ABIRATERONE ACETATE
     Indication: PROSTATE CANCER
     Dates: start: 20150513

REACTIONS (1)
  - Increased appetite [None]

NARRATIVE: CASE EVENT DATE: 201509
